FAERS Safety Report 24942200 (Version 1)
Quarter: 2025Q1

REPORT INFORMATION
  Report Type: Spontaneous
  Country: GB (occurrence: GB)
  Receive Date: 20250207
  Receipt Date: 20250207
  Transmission Date: 20250409
  Serious: Yes (Other)
  Sender: PFIZER
  Company Number: None

PATIENT
  Age: 72 Year
  Sex: Male
  Weight: 95 kg

DRUGS (9)
  1. FILGRASTIM [Suspect]
     Active Substance: FILGRASTIM
     Indication: White blood cell count decreased
     Route: 058
     Dates: start: 20250128, end: 20250129
  2. PANITUMUMAB [Concomitant]
     Active Substance: PANITUMUMAB
     Indication: Targeted cancer therapy
     Dates: start: 20250121
  3. IRINOTECAN [Concomitant]
     Active Substance: IRINOTECAN
     Indication: Chemotherapy
     Dates: start: 20250121
  4. ASPIRIN [Concomitant]
     Active Substance: ASPIRIN
  5. ATORVASTATIN [Concomitant]
     Active Substance: ATORVASTATIN
  6. BISOPROLOL [Concomitant]
     Active Substance: BISOPROLOL
  7. FAMOTIDINE [Concomitant]
     Active Substance: FAMOTIDINE
  8. FELODIPINE [Concomitant]
     Active Substance: FELODIPINE
  9. LINAGLIPTIN [Concomitant]
     Active Substance: LINAGLIPTIN

REACTIONS (3)
  - Back pain [Recovered/Resolved]
  - Pulse abnormal [Recovered/Resolved]
  - Palpitations [Recovered/Resolved]

NARRATIVE: CASE EVENT DATE: 20250128
